FAERS Safety Report 11360078 (Version 1)
Quarter: 2015Q3

REPORT INFORMATION
  Report Type: Spontaneous
  Country: US (occurrence: US)
  Receive Date: 20150810
  Receipt Date: 20150810
  Transmission Date: 20151125
  Serious: No
  Sender: FDA-Public Use
  Company Number: US-ASTRAZENECA-2015SE74321

PATIENT
  Sex: Female
  Weight: 99.8 kg

DRUGS (6)
  1. NOVOLIN [Concomitant]
     Active Substance: INSULIN HUMAN
     Indication: DIABETES MELLITUS
     Dosage: 70 UNITS IN THE MORNING AND 30 UNITS IN THE EVENING
  2. PILL [Concomitant]
     Indication: GOUT
  3. PRIMATENE [Concomitant]
     Active Substance: EPHEDRINE HYDROCHLORIDE\GUAIFENESIN
     Indication: BLOOD PRESSURE ABNORMAL
  4. BYDUREON [Suspect]
     Active Substance: EXENATIDE
     Route: 058
  5. CLONIDINE. [Concomitant]
     Active Substance: CLONIDINE
     Indication: BLOOD PRESSURE ABNORMAL
     Route: 048
  6. METFORMIN [Concomitant]
     Active Substance: METFORMIN HYDROCHLORIDE
     Indication: DIABETES MELLITUS
     Route: 048

REACTIONS (2)
  - Underdose [Unknown]
  - Intentional device misuse [Unknown]
